FAERS Safety Report 20020163 (Version 2)
Quarter: 2022Q2

REPORT INFORMATION
  Report Type: Report from Study
  Country: US (occurrence: US)
  Receive Date: 20211101
  Receipt Date: 20220617
  Transmission Date: 20220720
  Serious: Yes (Hospitalization, Other)
  Sender: FDA-Public Use
  Company Number: US-TAKEDA-2021TUS067402

PATIENT
  Age: 43 Year
  Sex: Female

DRUGS (1)
  1. VON WILLEBRAND FACTOR HUMAN [Suspect]
     Active Substance: VON WILLEBRAND FACTOR HUMAN
     Indication: Product used for unknown indication
     Dosage: 2600 INTERNATIONAL UNIT
     Route: 042

REACTIONS (6)
  - Cardiac arrest [Unknown]
  - Hysterectomy [Unknown]
  - Alopecia [Unknown]
  - Blood potassium decreased [Unknown]
  - Gait inability [Unknown]
  - Rectal haemorrhage [Unknown]

NARRATIVE: CASE EVENT DATE: 20211025
